FAERS Safety Report 24645768 (Version 1)
Quarter: 2024Q4

REPORT INFORMATION
  Report Type: Spontaneous
  Country: US (occurrence: US)
  Receive Date: 20241121
  Receipt Date: 20241121
  Transmission Date: 20250114
  Serious: No
  Sender: ALVOGEN
  Company Number: US-ALVOGEN-2024095122

PATIENT
  Sex: Female

DRUGS (7)
  1. VITAMIN D [Suspect]
     Active Substance: VITAMIN D NOS
     Indication: Product used for unknown indication
  2. TERIPARATIDE [Suspect]
     Active Substance: TERIPARATIDE
     Indication: Osteoporosis
     Dosage: 1ST PEN
     Dates: start: 20240609
  3. TERIPARATIDE [Suspect]
     Active Substance: TERIPARATIDE
     Indication: Osteoporosis
     Dosage: EXP: UU-JUN-2025?2ND PEN (BROKEN)
  4. TERIPARATIDE [Suspect]
     Active Substance: TERIPARATIDE
     Indication: Osteoporosis
     Dosage: GOT ANOTHER PEN?3RD PEN (REPLACED PEN)?EXPIRATION DATE: UU-JUN-2025
  5. TERIPARATIDE [Suspect]
     Active Substance: TERIPARATIDE
     Indication: Osteoporosis
     Dosage: ANOTHER PEN, EXPIRATION DATE: UU-JUN-2025, 250UG/ML, ONE INJECTION A DAY.
  6. TERIPARATIDE [Suspect]
     Active Substance: TERIPARATIDE
     Indication: Osteoporosis
     Dosage: ANOTHER PEN (CLEAR)
  7. LISINOPRIL [Concomitant]
     Active Substance: LISINOPRIL
     Indication: Hypertension
     Dosage: GENERIC LISINOPRIL 2.5 MG, FROM SOLCO (LONG OVAL WHITE LITTLE PILL)

REACTIONS (16)
  - Feeling hot [Unknown]
  - Injection site haemorrhage [Unknown]
  - Headache [Unknown]
  - Bone pain [Unknown]
  - Pain [Unknown]
  - Arthralgia [Not Recovered/Not Resolved]
  - Nausea [Unknown]
  - Dizziness [Unknown]
  - Insomnia [Not Recovered/Not Resolved]
  - Device delivery system issue [Unknown]
  - Product contamination [Unknown]
  - Device operational issue [Unknown]
  - Device malfunction [Unknown]
  - Device physical property issue [Unknown]
  - Device leakage [Unknown]
  - Wrong technique in device usage process [Unknown]

NARRATIVE: CASE EVENT DATE: 20240101
